FAERS Safety Report 5544194-3 (Version None)
Quarter: 2007Q4

REPORT INFORMATION
  Report Type: 
  Country: None (occurrence: None)
  Receive Date: 20071210
  Receipt Date: 20061126
  Transmission Date: 20080405
  Serious: No
  Sender: FDA-Public Use
  Company Number: US-AMGEN-KDL201391

PATIENT
  Sex: Female

DRUGS (2)
  1. ENBREL [Suspect]
     Indication: PSORIATIC ARTHROPATHY
     Route: 058
     Dates: start: 20021125
  2. METHOTREXATE [Concomitant]
     Route: 048
     Dates: start: 19960101

REACTIONS (4)
  - DIZZINESS [None]
  - FEELING HOT [None]
  - HYPOGLYCAEMIA [None]
  - NERVOUSNESS [None]
